FAERS Safety Report 10202202 (Version 1)
Quarter: 2014Q2

REPORT INFORMATION
  Report Type: Spontaneous
  Country: IT (occurrence: IT)
  Receive Date: 20140528
  Receipt Date: 20140528
  Transmission Date: 20141212
  Serious: Yes (Other)
  Sender: FDA-Public Use
  Company Number: IT-ACTAVIS-2014-10939

PATIENT
  Age: 55 Year
  Sex: Female

DRUGS (4)
  1. FLUDARABINE (UNKNOWN) [Suspect]
     Indication: STEM CELL TRANSPLANT
     Dosage: 50 MG, DAILY
     Route: 042
     Dates: start: 20140206, end: 20140210
  2. CYCLOPHOSPHAMIDE (UNKNOWN) [Suspect]
     Indication: STEM CELL TRANSPLANT
     Dosage: 3150 MG, DAILY
     Route: 042
     Dates: start: 20140215, end: 20140216
  3. ALKERAN                            /00006401/ [Suspect]
     Indication: STEM CELL TRANSPLANT
     Dosage: 113 MG, DAILY
     Route: 042
     Dates: start: 20140210, end: 20140211
  4. TREOSULFAN [Suspect]
     Indication: STEM CELL TRANSPLANT
     Dosage: 23 G, DAILY
     Route: 042
     Dates: start: 20140206, end: 20140208

REACTIONS (2)
  - Stomatitis [Recovered/Resolved]
  - Oesophagitis [Recovered/Resolved]
